FAERS Safety Report 6391023-4 (Version None)
Quarter: 2009Q4

REPORT INFORMATION
  Report Type: 
  Country: None (occurrence: None)
  Receive Date: 20091007
  Receipt Date: 20090928
  Transmission Date: 20100525
  Serious: Yes (Death)
  Sender: FDA-Public Use
  Company Number: US-BIOGENIDEC-2009BI021799

PATIENT
  Age: 70 Year
  Sex: Female
  Weight: 61 kg

DRUGS (1)
  1. AVONEX [Suspect]
     Indication: MULTIPLE SCLEROSIS
     Route: 030
     Dates: start: 20050101

REACTIONS (5)
  - CARDIAC FAILURE [None]
  - DYSPHAGIA [None]
  - PNEUMONIA ASPIRATION [None]
  - TOTAL LUNG CAPACITY DECREASED [None]
  - URINARY TRACT INFECTION [None]
